FAERS Safety Report 6104088-1 (Version None)
Quarter: 2009Q1

REPORT INFORMATION
  Report Type: 
  Country: None (occurrence: None)
  Receive Date: 20090227
  Receipt Date: 20080305
  Transmission Date: 20090719
  Serious: Yes (Other)
  Sender: FDA-Public Use
  Company Number: 552260

PATIENT
  Age: 14 Year
  Sex: Male
  Weight: 69.9 kg

DRUGS (1)
  1. ACCUTANE [Suspect]
     Indication: ACNE
     Dates: start: 19850101, end: 20000801

REACTIONS (8)
  - ANXIETY [None]
  - BLOOD CHOLESTEROL INCREASED [None]
  - BLOOD TRIGLYCERIDES INCREASED [None]
  - COLITIS ULCERATIVE [None]
  - CYST [None]
  - ILL-DEFINED DISORDER [None]
  - INFLAMMATORY BOWEL DISEASE [None]
  - OCULAR HYPERAEMIA [None]
